FAERS Safety Report 13666576 (Version 1)
Quarter: 2017Q2

REPORT INFORMATION
  Report Type: Spontaneous
  Country: US (occurrence: US)
  Receive Date: 20170619
  Receipt Date: 20170619
  Transmission Date: 20170830
  Serious: Yes (Hospitalization)
  Sender: FDA-Public Use
  Company Number: US-ROCHE-795842

PATIENT
  Sex: Female
  Weight: 103.9 kg

DRUGS (4)
  1. XELODA [Suspect]
     Active Substance: CAPECITABINE
     Indication: COLON CANCER
     Dosage: DOSE REPORTED AS 1650 TWICE DAILY X 14 DAYS.
     Route: 065
     Dates: start: 20110509, end: 20110522
  2. XELODA [Suspect]
     Active Substance: CAPECITABINE
     Dosage: DOSE REPORTED AS 1650 TWICE DAILY X 14 DAYS.
     Route: 065
     Dates: start: 20110531, end: 20110613
  3. OXALIPLATIN. [Concomitant]
     Active Substance: OXALIPLATIN
     Dosage: START DATE REPORTED AS 09 MAY AND END DATE AS 31 MAY.
     Route: 042
  4. DECADRON [Concomitant]
     Active Substance: DEXAMETHASONE
     Route: 042

REACTIONS (2)
  - Diarrhoea [Recovering/Resolving]
  - Dehydration [Recovering/Resolving]
